FAERS Safety Report 25034885 (Version 1)
Quarter: 2025Q1

REPORT INFORMATION
  Report Type: Spontaneous
  Country: US (occurrence: US)
  Receive Date: 20250304
  Receipt Date: 20250304
  Transmission Date: 20250409
  Serious: Yes (Other)
  Sender: INSMED
  Company Number: US-INSMED, INC.-2025-00745-US

PATIENT
  Sex: Male

DRUGS (3)
  1. ARIKAYCE [Suspect]
     Active Substance: AMIKACIN
     Indication: Mycobacterium abscessus infection
     Route: 055
     Dates: start: 20241010
  2. AZITHROMYCIN [Suspect]
     Active Substance: AZITHROMYCIN
     Indication: Mycobacterium abscessus infection
     Route: 065
     Dates: start: 20240624
  3. OMADACYCLINE [Suspect]
     Active Substance: OMADACYCLINE
     Indication: Mycobacterium abscessus infection
     Route: 065
     Dates: start: 20240624

REACTIONS (5)
  - Mycobacterium abscessus infection [Unknown]
  - Lung infiltration [Unknown]
  - Drug resistance [Unknown]
  - Drug ineffective for unapproved indication [Unknown]
  - Off label use [Unknown]
